FAERS Safety Report 7872506-4 (Version None)
Quarter: 2011Q4

REPORT INFORMATION
  Report Type: 
  Country: None (occurrence: None)
  Receive Date: 20111030
  Receipt Date: 20110427
  Transmission Date: 20120403
  Serious: No
  Sender: FDA-Public Use
  Company Number: US-AMGEN-USASP2011022105

PATIENT
  Sex: Male

DRUGS (3)
  1. ENBREL [Suspect]
     Indication: PSORIASIS
     Dosage: 50 MG, 2 TIMES/WK
     Dates: start: 20050101
  2. HUMIRA [Concomitant]
     Indication: PSORIASIS
     Dosage: UNK
  3. STELARA [Concomitant]
     Indication: PSORIASIS
     Dosage: UNK

REACTIONS (5)
  - DRUG INEFFECTIVE [None]
  - PSORIASIS [None]
  - INJECTION SITE SWELLING [None]
  - INJECTION SITE PAIN [None]
  - INJECTION SITE VESICLES [None]
